FAERS Safety Report 24556662 (Version 1)
Quarter: 2024Q4

REPORT INFORMATION
  Report Type: Spontaneous
  Country: CL (occurrence: CL)
  Receive Date: 20241028
  Receipt Date: 20241028
  Transmission Date: 20250114
  Serious: Yes (Other)
  Sender: BAXTER
  Company Number: CL-BAXTER-2024BAX026502

PATIENT
  Age: 58 Year
  Sex: Female

DRUGS (2)
  1. CYCLOPHOSPHAMIDE [Suspect]
     Active Substance: CYCLOPHOSPHAMIDE
     Indication: Chemotherapy
     Dosage: 1000 MG, DILUTED WITH 500 ML OF 0.9% SODIUM CHLORIDE, CYCLE 2, DAY 1/14, TOTAL VOLUME: 550 ML, THERA
     Route: 042
     Dates: start: 20240927, end: 20240927
  2. SODIUM CHLORIDE [Suspect]
     Active Substance: SODIUM CHLORIDE
     Indication: Medication dilution
     Dosage: 500 ML (0.9%), USED TO DILUTE 1000 MG OF CYCLOPHOSPHAMIDE, (RECONSTITUTION: 50 ML OF SODIUM CHLORIDE
     Route: 042
     Dates: start: 20240927, end: 20240927

REACTIONS (2)
  - Hypertensive crisis [Unknown]
  - Acute pulmonary oedema [Unknown]

NARRATIVE: CASE EVENT DATE: 20240927
